FAERS Safety Report 7341511-9 (Version None)
Quarter: 2011Q1

REPORT INFORMATION
  Report Type: 
  Country: None (occurrence: None)
  Receive Date: 20110309
  Receipt Date: 20110304
  Transmission Date: 20110831
  Serious: Yes (Hospitalization)
  Sender: FDA-Public Use
  Company Number: US-TEVA-265564USA

PATIENT
  Age: 62 Year
  Sex: Female

DRUGS (10)
  1. ESCITALOPRAM OXALATE [Concomitant]
  2. ANCOVERT [Concomitant]
  3. COPAXONE [Suspect]
     Indication: MULTIPLE SCLEROSIS
     Route: 058
     Dates: end: 20100101
  4. PREGABALIN [Concomitant]
  5. OXYBUTYNIN [Concomitant]
  6. KAPIDEX [Concomitant]
  7. MODAFINIL [Concomitant]
  8. ROSUVASTATIN [Concomitant]
  9. RISEDRONATE SODIUM [Concomitant]
  10. LOTREL [Concomitant]

REACTIONS (1)
  - INJECTION SITE INFECTION [None]
